FAERS Safety Report 18085136 (Version 2)
Quarter: 2020Q3

REPORT INFORMATION
  Report Type: Report from Study
  Country: MX (occurrence: MX)
  Receive Date: 20200728
  Receipt Date: 20200811
  Transmission Date: 20201103
  Serious: Yes (Other)
  Sender: FDA-Public Use
  Company Number: NVSC2020MX210733

PATIENT
  Sex: Female
  Weight: 86 kg

DRUGS (10)
  1. INFLIXIMAB [Concomitant]
     Active Substance: INFLIXIMAB
     Indication: PSORIASIS
     Route: 065
  2. COSENTYX [Suspect]
     Active Substance: SECUKINUMAB
     Indication: PSORIASIS
     Dosage: 2 DF, QW (150MG)
     Route: 058
     Dates: start: 201906
  3. RANTUDIL [Concomitant]
     Active Substance: ACEMETACIN
     Indication: ARTHRALGIA
     Dosage: 1 DF (90 MG) (8 YEARS AGO)
     Route: 048
  4. JANUVIA [Concomitant]
     Active Substance: SITAGLIPTIN PHOSPHATE
     Indication: DIABETES MELLITUS
     Dosage: 100 MG
     Route: 065
  5. METFORMIN [Concomitant]
     Active Substance: METFORMIN HYDROCHLORIDE
     Indication: DIABETES MELLITUS
     Dosage: 1.5 MG, QD (3 YEARS AGO) 850 MG
     Route: 048
  6. INSULIN GLARGINE [Concomitant]
     Active Substance: INSULIN GLARGINE
     Indication: DIABETES MELLITUS
     Dosage: 1 DF 18 UNITS (AT NIGHT) 2 YEARS AGO
     Route: 058
  7. BEZAFIBRATE [Concomitant]
     Active Substance: BEZAFIBRATE
     Indication: BLOOD TRIGLYCERIDES
     Dosage: 2 DF (200MG ) 3 YEARS AGO
     Route: 048
  8. OMEPRAZOLE. [Concomitant]
     Active Substance: OMEPRAZOLE
     Indication: HIATUS HERNIA
     Dosage: 4 MG (20 MG)
     Route: 048
     Dates: start: 2009
  9. COSENTYX [Suspect]
     Active Substance: SECUKINUMAB
     Dosage: 2 DF, QMO (150MG)
     Route: 058
  10. ENALAPRIL [Concomitant]
     Active Substance: ENALAPRIL
     Indication: BLOOD PRESSURE ABNORMAL
     Dosage: 1 DF (10 MG) (AT NIGHT) ONE YEAR AGO
     Route: 048

REACTIONS (7)
  - Stress [Unknown]
  - Skin burning sensation [Recovering/Resolving]
  - Pain of skin [Unknown]
  - Cellulitis [Recovered/Resolved]
  - Pruritus [Recovering/Resolving]
  - Psoriasis [Recovering/Resolving]
  - Inappropriate schedule of product administration [Unknown]

NARRATIVE: CASE EVENT DATE: 2020
